FAERS Safety Report 20161914 (Version 1)
Quarter: 2021Q4

REPORT INFORMATION
  Report Type: Spontaneous
  Country: US (occurrence: None)
  Receive Date: 20211208
  Receipt Date: 20211208
  Transmission Date: 20220303
  Serious: Yes (Hospitalization)
  Sender: FDA-Public Use
  Company Number: None

PATIENT
  Sex: Female
  Weight: 102.3 kg

DRUGS (3)
  1. BLEOMYCIN [Suspect]
     Active Substance: BLEOMYCIN SULFATE
     Dates: end: 20211101
  2. CISPLATIN [Suspect]
     Active Substance: CISPLATIN
     Dates: end: 20211022
  3. ETOPOSIDE [Suspect]
     Active Substance: ETOPOSIDE
     Dates: end: 20211022

REACTIONS (11)
  - Chills [None]
  - Cough [None]
  - Diarrhoea [None]
  - Pyrexia [None]
  - Tachycardia [None]
  - Hypokalaemia [None]
  - Transaminases increased [None]
  - Blood lactic acid increased [None]
  - Upper respiratory tract infection [None]
  - Gastroenteritis [None]
  - Systemic inflammatory response syndrome [None]

NARRATIVE: CASE EVENT DATE: 20211101
